FAERS Safety Report 6000512-3 (Version None)
Quarter: 2008Q4

REPORT INFORMATION
  Report Type: 
  Country: None (occurrence: None)
  Receive Date: 20081215
  Receipt Date: 20080423
  Transmission Date: 20090506
  Serious: No
  Sender: FDA-Public Use
  Company Number: US-BAYER-200811934BCC

PATIENT
  Age: 61 Year
  Sex: Female
  Weight: 67 kg

DRUGS (3)
  1. ALEVE (CAPLET) [Suspect]
     Indication: ARTHRITIS
     Dosage: TOTAL DAILY DOSE: 660 MG  UNIT DOSE: 220 MG
     Route: 048
  2. NASONEX [Concomitant]
     Route: 065
  3. TAGAMET [Concomitant]
     Route: 065

REACTIONS (1)
  - DYSPEPSIA [None]
